FAERS Safety Report 9531695 (Version 2)
Quarter: 2013Q3

REPORT INFORMATION
  Report Type: Spontaneous
  Country: US (occurrence: US)
  Receive Date: 20130918
  Receipt Date: 20130926
  Transmission Date: 20140515
  Serious: Yes (Other)
  Sender: FDA-Public Use
  Company Number: US-RB-057943-13

PATIENT
  Age: 58 Year
  Sex: Female

DRUGS (2)
  1. DELSYM ADULT GRAPE [Suspect]
     Indication: PRODUCT USED FOR UNKNOWN INDICATION
     Route: 048
     Dates: start: 20130903
  2. DELSYM ADULT GRAPE [Suspect]
     Dosage: LAST USED THE PRODUCT ON 11-SEP-2013.
     Route: 048
     Dates: start: 20130911

REACTIONS (1)
  - Epistaxis [Recovered/Resolved]
